FAERS Safety Report 9549156 (Version 2)
Quarter: 2013Q4

REPORT INFORMATION
  Report Type: Report from Study
  Country: US (occurrence: US)
  Receive Date: 20130924
  Receipt Date: 20131025
  Transmission Date: 20140711
  Serious: Yes (Hospitalization)
  Sender: FDA-Public Use
  Company Number: US-ROCHE-1279822

PATIENT
  Age: 20 Year
  Sex: Female
  Weight: 99.88 kg

DRUGS (14)
  1. XOLAIR [Suspect]
     Indication: ASTHMA
     Route: 065
  2. ADVAIR DISKUS [Concomitant]
     Dosage: 250-50MCG PER DOSE, 500/50
     Route: 055
  3. ADVAIR DISKUS [Concomitant]
     Dosage: ONE INHALE BID
     Route: 065
  4. VENTOLIN HFA [Concomitant]
     Dosage: 108 (90BASESD)MCG PER ACT
     Route: 065
  5. VENTOLIN HFA [Concomitant]
     Dosage: 2 INHAL PRN
     Route: 065
  6. ALBUTEROL SULFATE [Concomitant]
     Dosage: 5MG/ML  0.5 PERCENT INHALATION
     Route: 065
  7. PREDNISONE [Concomitant]
     Dosage: 60MG FOR 2 DAY, THEN
     Route: 048
  8. PREDNISONE [Concomitant]
     Dosage: 50MG FOR 2 DAYS, THEN
     Route: 048
  9. PREDNISONE [Concomitant]
     Dosage: 40MG FOR 2 DAYS, THEN
     Route: 048
  10. PREDNISONE [Concomitant]
     Dosage: 30MG FOR 2 DAYS, THEN
     Route: 048
  11. PREDNISONE [Concomitant]
     Dosage: 20MG FOR 2 DAYS, THEN
     Route: 048
  12. PREDNISONE [Concomitant]
     Dosage: FOR 2 DAYS
     Route: 048
  13. METHOTREXATE [Concomitant]
     Dosage: 2 PILLS ONCE WEEKLY
     Route: 065
  14. METHOTREXATE [Concomitant]
     Dosage: INCREASE BY 1 PILL WKLY UNTIL 6 PILL WKLY
     Route: 065

REACTIONS (4)
  - Respiratory arrest [Unknown]
  - Asthma [Unknown]
  - Dyspnoea [Unknown]
  - Wheezing [Unknown]
